FAERS Safety Report 9594400 (Version 1)
Quarter: 2013Q4

REPORT INFORMATION
  Report Type: Spontaneous
  Country: CA (occurrence: CA)
  Receive Date: 20131004
  Receipt Date: 20131004
  Transmission Date: 20140711
  Serious: Yes (Other)
  Sender: FDA-Public Use
  Company Number: CA-ASTRAZENECA-2013SE72966

PATIENT
  Age: 49 Year
  Sex: Female

DRUGS (5)
  1. ZOLADEX [Suspect]
     Route: 058
  2. TAMOXIFEN [Suspect]
     Route: 048
  3. PAMIDRONATE DISODIUM [Suspect]
     Route: 042
  4. LETROZOLE [Suspect]
     Route: 048
  5. CLODRONATE [Suspect]

REACTIONS (5)
  - Breast cancer [Unknown]
  - Drug intolerance [Unknown]
  - Influenza like illness [Unknown]
  - Malignant neoplasm progression [Unknown]
  - Myalgia [Unknown]
